FAERS Safety Report 6981985-6 (Version None)
Quarter: 2010Q3

REPORT INFORMATION
  Report Type: 
  Country: None (occurrence: None)
  Receive Date: 20100914
  Receipt Date: 20091204
  Transmission Date: 20110219
  Serious: No
  Sender: FDA-Public Use
  Company Number: US-PFIZER INC-2009284309

PATIENT
  Age: 75 Year
  Sex: Male
  Weight: 107 kg

DRUGS (1)
  1. LYRICA [Suspect]
     Indication: NEUROPATHY PERIPHERAL
     Dosage: 75 MG, 1X/DAY
     Dates: start: 20091001, end: 20091001

REACTIONS (1)
  - GINGIVAL SWELLING [None]
